FAERS Safety Report 13581535 (Version 1)
Quarter: 2017Q2

REPORT INFORMATION
  Report Type: Spontaneous
  Country: US (occurrence: US)
  Receive Date: 20170525
  Receipt Date: 20170525
  Transmission Date: 20170830
  Serious: No
  Sender: FDA-Public Use
  Company Number: US-BAYER-2017-098993

PATIENT
  Age: 85 Year
  Sex: Female
  Weight: 108 kg

DRUGS (3)
  1. MIRALAX [Suspect]
     Active Substance: POLYETHYLENE GLYCOL 3350
     Indication: GASTROINTESTINAL DISORDER
     Dosage: 1 DF, QD, OFF AND ON BUT FOR MORE THAN 7 DAYS AT A TIME
     Route: 048
     Dates: start: 201703
  2. DENOSUMAB [Concomitant]
     Active Substance: DENOSUMAB
     Dosage: UNK
  3. STATIN [Concomitant]
     Active Substance: UNSPECIFIED INGREDIENT

REACTIONS (4)
  - Rash macular [Not Recovered/Not Resolved]
  - Incorrect drug administration duration [Unknown]
  - Rash [Not Recovered/Not Resolved]
  - Micturition disorder [Not Recovered/Not Resolved]

NARRATIVE: CASE EVENT DATE: 2017
